FAERS Safety Report 21462681 (Version 1)
Quarter: 2022Q4

REPORT INFORMATION
  Report Type: Spontaneous
  Country: BG (occurrence: BG)
  Receive Date: 20221017
  Receipt Date: 20221017
  Transmission Date: 20230113
  Serious: Yes (Other)
  Sender: FDA-Public Use
  Company Number: BG-TOLMAR, INC.-22BG036953

PATIENT
  Age: 72 Year
  Sex: Male

DRUGS (6)
  1. ELIGARD [Suspect]
     Active Substance: LEUPROLIDE ACETATE
     Indication: Prostate cancer
     Dosage: UNK
     Dates: start: 202111, end: 202202
  2. ELIGARD [Suspect]
     Active Substance: LEUPROLIDE ACETATE
     Dosage: UNK
  3. YONISTIB [Concomitant]
     Indication: Prostate cancer
     Dosage: UNK
     Dates: start: 202111, end: 202202
  4. YONISTIB [Concomitant]
     Dosage: UNK
  5. GONADORELIN DIACETATE TETRAHYDRATE [Concomitant]
     Active Substance: GONADORELIN DIACETATE TETRAHYDRATE
     Indication: Prostate cancer
     Dosage: UNK
     Dates: start: 202111, end: 202202
  6. GONADORELIN DIACETATE TETRAHYDRATE [Concomitant]
     Active Substance: GONADORELIN DIACETATE TETRAHYDRATE
     Dosage: UNK

REACTIONS (3)
  - Prostate cancer [Unknown]
  - Prostatic specific antigen increased [Recovered/Resolved]
  - Blood testosterone increased [Unknown]

NARRATIVE: CASE EVENT DATE: 20220301
